FAERS Safety Report 11749289 (Version 1)
Quarter: 2015Q4

REPORT INFORMATION
  Report Type: Spontaneous
  Country: US (occurrence: None)
  Receive Date: 20151117
  Receipt Date: 20151117
  Transmission Date: 20160304
  Serious: Yes (Life-Threatening, Hospitalization, Disabling)
  Sender: FDA-Public Use
  Company Number: None

PATIENT
  Age: 57 Year
  Sex: Female
  Weight: 86.18 kg

DRUGS (17)
  1. XELJANZ [Suspect]
     Active Substance: TOFACITINIB CITRATE
     Indication: RHEUMATOID ARTHRITIS
     Route: 048
     Dates: start: 201503, end: 201511
  2. AZELASTINE [Concomitant]
     Active Substance: AZELASTINE
  3. NEURONTIN [Concomitant]
     Active Substance: GABAPENTIN
  4. ZAROXOLYN [Concomitant]
     Active Substance: METOLAZONE
  5. LYRICA [Concomitant]
     Active Substance: PREGABALIN
  6. IBS MED [Concomitant]
  7. JANUVIA [Concomitant]
     Active Substance: SITAGLIPTIN PHOSPHATE
  8. NEXIUM [Concomitant]
     Active Substance: ESOMEPRAZOLE MAGNESIUM
  9. PERCOCET [Concomitant]
     Active Substance: ACETAMINOPHEN\OXYCODONE HYDROCHLORIDE
  10. XELJANZE [Concomitant]
  11. C YTOMEL [Concomitant]
  12. SYNTHROID [Concomitant]
     Active Substance: LEVOTHYROXINE SODIUM
  13. VALSATANA [Concomitant]
     Active Substance: VALSARTAN
  14. XYZAL [Concomitant]
     Active Substance: LEVOCETIRIZINE DIHYDROCHLORIDE
  15. CYMBALTA [Concomitant]
     Active Substance: DULOXETINE HYDROCHLORIDE
  16. TRICOR [Concomitant]
     Active Substance: FENOFIBRATE
  17. POTASSIUM [Concomitant]
     Active Substance: POTASSIUM

REACTIONS (4)
  - Fall [None]
  - Confusional state [None]
  - Heart rate decreased [None]
  - Blood pressure abnormal [None]

NARRATIVE: CASE EVENT DATE: 20151103
